FAERS Safety Report 7161306-9 (Version None)
Quarter: 2010Q4

REPORT INFORMATION
  Report Type: 
  Country: None (occurrence: None)
  Receive Date: 20101210
  Receipt Date: 20101210
  Transmission Date: 20110411
  Serious: Yes (Life-Threatening, Hospitalization, Disabling, Other)
  Sender: FDA-Public Use
  Company Number: None

PATIENT
  Age: 20 Year
  Sex: Male
  Weight: 79.5 kg

DRUGS (1)
  1. BENZACLIN [Suspect]
     Indication: ACNE
     Dates: start: 20020101, end: 20070101

REACTIONS (3)
  - CLOSTRIDIUM DIFFICILE COLITIS [None]
  - COLON OPERATION [None]
  - DIARRHOEA HAEMORRHAGIC [None]
